FAERS Safety Report 5771384-7 (Version None)
Quarter: 2008Q2

REPORT INFORMATION
  Report Type: 
  Country: None (occurrence: None)
  Receive Date: 20080610
  Receipt Date: 20080602
  Transmission Date: 20081010
  Serious: Yes (Death, Hospitalization)
  Sender: FDA-Public Use
  Company Number: 163-20785-08010005

PATIENT
  Age: 84 Year
  Sex: Female

DRUGS (5)
  1. THALOMID [Suspect]
     Indication: MULTIPLE MYELOMA
     Dosage: 150 MG, 1 IN 1 D, ORAL; 50MG - 200MG, DAILY, ORAL
     Route: 048
     Dates: start: 20070817, end: 20071001
  2. THALOMID [Suspect]
     Indication: MULTIPLE MYELOMA
     Dosage: 150 MG, 1 IN 1 D, ORAL; 50MG - 200MG, DAILY, ORAL
     Route: 048
     Dates: start: 20071127, end: 20071201
  3. VELCADE (BOREZOMID) [Concomitant]
  4. DEXAMETHASONE TAB [Concomitant]
  5. WARFARIN SODIUM [Concomitant]

REACTIONS (4)
  - DEEP VEIN THROMBOSIS [None]
  - MULTI-ORGAN FAILURE [None]
  - MULTIPLE MYELOMA [None]
  - THROMBOPHLEBITIS SUPERFICIAL [None]
